FAERS Safety Report 25188760 (Version 1)
Quarter: 2025Q2

REPORT INFORMATION
  Report Type: Spontaneous
  Country: US (occurrence: None)
  Receive Date: 20250410
  Receipt Date: 20250410
  Transmission Date: 20250717
  Serious: No
  Sender: FDA-CTU
  Company Number: None

PATIENT
  Age: 56 Year
  Sex: Female

DRUGS (1)
  1. TYENNE [Suspect]
     Active Substance: TOCILIZUMAB-AAZG
     Indication: Rheumatoid arthritis
     Dosage: FREQUENCY : WEEKLY;?

REACTIONS (11)
  - Urticaria [None]
  - Therapy interrupted [None]
  - Eye irritation [None]
  - Skin burning sensation [None]
  - Oral discomfort [None]
  - Skin burning sensation [None]
  - Drug ineffective [None]
  - Pruritus [None]
  - Eye pruritus [None]
  - Lip pruritus [None]
  - Pruritus [None]
